FAERS Safety Report 7478330-9 (Version None)
Quarter: 2011Q2

REPORT INFORMATION
  Report Type: 
  Country: None (occurrence: None)
  Receive Date: 20110513
  Receipt Date: 20110503
  Transmission Date: 20111010
  Serious: Yes (Disabling)
  Sender: FDA-Public Use
  Company Number: DE-JNJFOC-20110501325

PATIENT
  Sex: Male
  Weight: 74 kg

DRUGS (7)
  1. CALCIUM [Concomitant]
     Indication: METASTASES TO BONE
     Route: 048
  2. ZOLEDRONIC ACID [Concomitant]
     Indication: METASTASES TO BONE
     Route: 042
  3. NOVAMINSULFON [Concomitant]
     Indication: PAIN
     Route: 048
  4. PAMORELIN [Concomitant]
     Indication: PROSTATE CANCER
     Route: 058
  5. ABIRATERONE ACETATE [Suspect]
     Indication: PROSTATE CANCER METASTATIC
     Route: 048
  6. ABIRATERONE ACETATE [Suspect]
     Route: 048
  7. TRAMADOL HCL [Concomitant]
     Indication: PAIN
     Route: 048

REACTIONS (3)
  - JAUNDICE [None]
  - DECREASED APPETITE [None]
  - HEPATIC ENZYME INCREASED [None]
